FAERS Safety Report 5600563-4 (Version None)
Quarter: 2008Q1

REPORT INFORMATION
  Report Type: 
  Country: None (occurrence: None)
  Receive Date: 20080123
  Receipt Date: 20080108
  Transmission Date: 20080703
  Serious: No
  Sender: FDA-Public Use
  Company Number: US-BOEHRINGER INGELHEIM PHARMACEUTICALS, INC.-2007-BP-26330BP

PATIENT
  Sex: Male

DRUGS (5)
  1. ATROVENT HFA [Suspect]
     Route: 055
     Dates: start: 20061218
  2. METOPROLOL TARTRATE [Concomitant]
     Dates: start: 20070226
  3. LISINOPROLOL [Concomitant]
     Dates: start: 20060926
  4. PREDNISONE [Concomitant]
     Dates: start: 20060826
  5. PLAVIX [Concomitant]
     Dates: start: 20061102

REACTIONS (2)
  - DRUG INEFFECTIVE [None]
  - DYSPNOEA [None]
